FAERS Safety Report 10595670 (Version 2)
Quarter: 2014Q4

REPORT INFORMATION
  Report Type: Report from Study
  Country: US (occurrence: US)
  Receive Date: 20141120
  Receipt Date: 20141126
  Transmission Date: 20150529
  Serious: Yes (Other)
  Sender: FDA-Public Use
  Company Number: US-BAXTER-2014BAX068428

PATIENT
  Age: 55 Year
  Sex: Female
  Weight: 85.35 kg

DRUGS (1)
  1. GAMMAGARD LIQUID [Suspect]
     Active Substance: HUMAN IMMUNOGLOBULIN G
     Indication: IMMUNODEFICIENCY COMMON VARIABLE
     Route: 058
     Dates: start: 20140617

REACTIONS (2)
  - Rheumatoid arthritis [Not Recovered/Not Resolved]
  - Synovial cyst [Unknown]

NARRATIVE: CASE EVENT DATE: 20141031
